FAERS Safety Report 5847752-1 (Version None)
Quarter: 2008Q3

REPORT INFORMATION
  Report Type: 
  Country: None (occurrence: None)
  Receive Date: 20080814
  Receipt Date: 20080512
  Transmission Date: 20090109
  Serious: Yes (Life-Threatening, Hospitalization)
  Sender: FDA-Public Use
  Company Number: 2008S1011869

PATIENT
  Age: 87 Year
  Sex: Male

DRUGS (5)
  1. CLARITHROMYCIN [Suspect]
     Indication: SKIN INFECTION
     Dosage: 500 MG; ORAL
     Route: 048
     Dates: start: 20080410, end: 20080421
  2. BENDROFLUAZIDE (BENDROFLUMETHIAZIDE) [Concomitant]
  3. ERYTHROMYCIN [Concomitant]
  4. RAMIPRIL [Concomitant]
  5. WARFARIN SODIUM [Concomitant]

REACTIONS (5)
  - COAGULOPATHY [None]
  - HYPERBILIRUBINAEMIA [None]
  - HYPOTENSION [None]
  - JAUNDICE [None]
  - RENAL FAILURE ACUTE [None]
